FAERS Safety Report 8478810-3 (Version None)
Quarter: 2012Q2

REPORT INFORMATION
  Report Type: 
  Country: None (occurrence: None)
  Receive Date: 20120629
  Receipt Date: 20120615
  Transmission Date: 20120825
  Serious: Yes (Hospitalization)
  Sender: FDA-Public Use
  Company Number: JP-ROCHE-1073639

PATIENT
  Sex: Male
  Weight: 60.8 kg

DRUGS (10)
  1. IMIDAPRIL HYDROCHLORIDE [Suspect]
     Indication: HYPERTENSION
     Route: 048
     Dates: start: 20040101
  2. NIFEDIPINE [Suspect]
     Indication: HYPERTENSION
     Route: 048
     Dates: start: 20101001
  3. ACTEMRA [Suspect]
     Route: 042
     Dates: start: 20100917
  4. KETOPROFEN [Suspect]
     Indication: RHEUMATOID ARTHRITIS
     Route: 061
     Dates: start: 20030704
  5. EFONIDIPINE [Suspect]
     Indication: HYPERTENSION
     Route: 048
     Dates: start: 20040101
  6. OLMESARTAN MEDOXOMIL [Suspect]
     Indication: HYPERTENSION
     Route: 048
     Dates: start: 20090306
  7. PLACEBO [Suspect]
     Indication: RHEUMATOID ARTHRITIS
     Route: 058
     Dates: start: 20100917
  8. MISOPROSTOL [Suspect]
     Indication: GASTRITIS PROPHYLAXIS
     Route: 048
     Dates: start: 20120322, end: 20120525
  9. ACTEMRA [Suspect]
     Indication: RHEUMATOID ARTHRITIS
     Route: 058
     Dates: start: 20110304
  10. ACTEMRA [Suspect]
     Route: 058
     Dates: start: 20120223, end: 20120223

REACTIONS (1)
  - AGRANULOCYTOSIS [None]
